FAERS Safety Report 10616137 (Version 2)
Quarter: 2014Q4

REPORT INFORMATION
  Report Type: Spontaneous
  Country: SE (occurrence: SE)
  Receive Date: 20141201
  Receipt Date: 20141231
  Transmission Date: 20150529
  Serious: Yes (Death, Other)
  Sender: FDA-Public Use
  Company Number: SE-CELGENE-150-50794-14080861

PATIENT

DRUGS (2)
  1. AZACITIDINE. [Suspect]
     Active Substance: AZACITIDINE
     Indication: MYELODYSPLASTIC SYNDROME
     Route: 065
  2. ELTROMBOPAG [Concomitant]
     Active Substance: ELTROMBOPAG
     Indication: MYELODYSPLASTIC SYNDROME
     Route: 048

REACTIONS (35)
  - Blood product transfusion dependent [Unknown]
  - Urinary tract infection [Unknown]
  - Respiratory tract infection viral [Unknown]
  - Vision blurred [Unknown]
  - Oedema peripheral [Unknown]
  - Bronchitis bacterial [Unknown]
  - Febrile neutropenia [Unknown]
  - Purpura [Unknown]
  - Oral candidiasis [Unknown]
  - Haemorrhage [Unknown]
  - Nausea [Unknown]
  - Constipation [Unknown]
  - Folliculitis [Unknown]
  - Vertigo [Unknown]
  - Neutropenia [Unknown]
  - Injection site rash [Unknown]
  - Injection site mass [Unknown]
  - Tooth infection [Unknown]
  - Headache [Unknown]
  - Myalgia [Unknown]
  - Chest pain [Unknown]
  - Deep vein thrombosis [Unknown]
  - Urticaria [Unknown]
  - Decreased appetite [Unknown]
  - Transient ischaemic attack [Unknown]
  - Erysipelas [Unknown]
  - Weight decreased [Unknown]
  - Pneumonia [Unknown]
  - Rash [Unknown]
  - Pruritus [Unknown]
  - Fatigue [Unknown]
  - Escherichia sepsis [Fatal]
  - Hepatic enzyme increased [Unknown]
  - Paronychia [Unknown]
  - Diarrhoea [Unknown]
